FAERS Safety Report 10645380 (Version 4)
Quarter: 2015Q3

REPORT INFORMATION
  Report Type: Report from Study
  Country: CA (occurrence: CA)
  Receive Date: 20141211
  Receipt Date: 20150928
  Transmission Date: 20151125
  Serious: Yes (Hospitalization, Other)
  Sender: FDA-Public Use
  Company Number: PHHY2013CA130630

PATIENT
  Age: 57 Year
  Sex: Female

DRUGS (3)
  1. SANDOSTATIN LAR DEPOT [Suspect]
     Active Substance: OCTREOTIDE ACETATE
     Dosage: 30 MG, QMO (EVERY FOUR WEEKS)
     Route: 030
  2. SANDOSTATIN [Suspect]
     Active Substance: OCTREOTIDE ACETATE
     Indication: OVARIAN CANCER
     Dosage: 150 UG BID
     Route: 058
     Dates: start: 20130915
  3. SANDOSTATIN LAR DEPOT [Suspect]
     Active Substance: OCTREOTIDE ACETATE
     Indication: OVARIAN CANCER
     Dosage: UNK
     Route: 030
     Dates: start: 20131016

REACTIONS (9)
  - Vomiting [Unknown]
  - Blood pressure systolic increased [Unknown]
  - Off label use [Unknown]
  - Infection [Unknown]
  - Injection site pain [Recovered/Resolved]
  - Pyrexia [Unknown]
  - Intestinal obstruction [Unknown]
  - Blood creatinine increased [Not Recovered/Not Resolved]
  - Intestinal obstruction [Recovered/Resolved]

NARRATIVE: CASE EVENT DATE: 20140305
